FAERS Safety Report 17428186 (Version 1)
Quarter: 2020Q1

REPORT INFORMATION
  Report Type: Spontaneous
  Country: US (occurrence: US)
  Receive Date: 20200218
  Receipt Date: 20200218
  Transmission Date: 20200409
  Serious: No
  Sender: FDA-Public Use
  Company Number: US-ALKEM LABORATORIES LIMITED-US-ALKEM-2019-08125

PATIENT
  Sex: Female

DRUGS (1)
  1. LINEZOLID. [Suspect]
     Active Substance: LINEZOLID
     Indication: SKIN BACTERIAL INFECTION
     Dosage: 600 MILLIGRAM, BID
     Route: 048

REACTIONS (1)
  - Exposure during pregnancy [Unknown]
